FAERS Safety Report 21254733 (Version 1)
Quarter: 2022Q3

REPORT INFORMATION
  Report Type: Spontaneous
  Country: US (occurrence: None)
  Receive Date: 20220824
  Receipt Date: 20220824
  Transmission Date: 20221026
  Serious: Yes (Disabling)
  Sender: FDA-Public Use
  Company Number: None

PATIENT
  Age: 62 Year
  Sex: Male
  Weight: 92.25 kg

DRUGS (27)
  1. ATORVASTATIN [Suspect]
     Active Substance: ATORVASTATIN
     Indication: Blood cholesterol increased
     Dosage: FREQUENCY : DAILY;?
     Route: 048
     Dates: end: 20220804
  2. PRAVASTATIN [Suspect]
     Active Substance: PRAVASTATIN
  3. Dexcom fluticasone-umeclidin-vilanter [Concomitant]
  4. PANTOPRAZOLE [Concomitant]
     Active Substance: PANTOPRAZOLE
  5. GUAIFENESIN [Concomitant]
     Active Substance: GUAIFENESIN
  6. FERROUS SULFATE [Concomitant]
     Active Substance: FERROUS SULFATE
  7. FAMOTIDINE [Concomitant]
     Active Substance: FAMOTIDINE
  8. PECTIN [Concomitant]
     Active Substance: PECTIN
  9. VITAMIN B6 [Concomitant]
     Active Substance: PYRIDOXINE HYDROCHLORIDE
  10. /mins 4/c.vinegar [Concomitant]
  11. MONTELUKAST [Concomitant]
     Active Substance: MONTELUKAST SODIUM
  12. BACLOFEN [Concomitant]
     Active Substance: BACLOFEN
  13. FARXIGA [Concomitant]
     Active Substance: DAPAGLIFLOZIN PROPANEDIOL
  14. DILTIAZEM [Concomitant]
     Active Substance: DILTIAZEM
  15. ANASTROZOLE [Concomitant]
     Active Substance: ANASTROZOLE
  16. ESOMEPRAZOLE [Concomitant]
     Active Substance: ESOMEPRAZOLE
  17. MUPIROCIN [Concomitant]
     Active Substance: MUPIROCIN
  18. STIOLTO RESPIMAT [Concomitant]
     Active Substance: OLODATEROL HYDROCHLORIDE\TIOTROPIUM BROMIDE MONOHYDRATE
  19. OZEMPIC [Concomitant]
     Active Substance: SEMAGLUTIDE
  20. FLUMAZENIL [Concomitant]
     Active Substance: FLUMAZENIL
  21. AZELASTINE [Concomitant]
     Active Substance: AZELASTINE
  22. ipratropium-albuteroL [Concomitant]
  23. MOMETASONE [Concomitant]
     Active Substance: MOMETASONE
  24. LISINOPRIL [Concomitant]
     Active Substance: LISINOPRIL
  25. ALBUTEROL SULFATE [Concomitant]
     Active Substance: ALBUTEROL SULFATE
  26. FLUTICASONE PROPIONATE [Concomitant]
     Active Substance: FLUTICASONE PROPIONATE
  27. UNSPECIFIED INGREDIENT [Concomitant]
     Active Substance: UNSPECIFIED INGREDIENT

REACTIONS (10)
  - Fatigue [None]
  - Feeling abnormal [None]
  - Somnolence [None]
  - Therapy cessation [None]
  - Muscle atrophy [None]
  - Peripheral nerve lesion [None]
  - Gait disturbance [None]
  - Inability to afford medication [None]
  - Hypersomnia [None]
  - Product complaint [None]

NARRATIVE: CASE EVENT DATE: 20150819
